FAERS Safety Report 9621316 (Version 1)
Quarter: 2013Q4

REPORT INFORMATION
  Report Type: Spontaneous
  Country: US (occurrence: None)
  Receive Date: 20131011
  Receipt Date: 20131011
  Transmission Date: 20140711
  Serious: Yes (Hospitalization)
  Sender: FDA-Public Use
  Company Number: None

PATIENT
  Age: 88 Year
  Sex: Male
  Weight: 101 kg

DRUGS (13)
  1. RIVAROXABAN [Suspect]
     Indication: ATRIAL FIBRILLATION
     Route: 048
  2. HOME MEDS [Concomitant]
  3. LASIX [Concomitant]
  4. PROTONIX [Concomitant]
  5. VESICARE [Concomitant]
  6. ASA [Concomitant]
  7. XARELTO [Concomitant]
  8. PRAVACHOL [Concomitant]
  9. AMBIEN [Concomitant]
  10. NORVASC [Concomitant]
  11. CYMBALTA [Concomitant]
  12. OSCAL [Concomitant]
  13. VITAMIN D3 [Concomitant]

REACTIONS (4)
  - Melaena [None]
  - Dizziness [None]
  - Dizziness [None]
  - Lower gastrointestinal haemorrhage [None]
